FAERS Safety Report 9182368 (Version 2)
Quarter: 2013Q4

REPORT INFORMATION
  Report Type: Spontaneous
  Country: US (occurrence: US)
  Receive Date: 20120626
  Receipt Date: 20131001
  Transmission Date: 20140711
  Serious: Yes (Hospitalization)
  Sender: FDA-Public Use
  Company Number: PHEH2011US02292

PATIENT
  Sex: Female

DRUGS (8)
  1. DIOVAN HCT [Suspect]
     Indication: HYPERTENSION
     Dosage: 1 DF, BID
     Route: 048
  2. TEKTURNA [Suspect]
     Indication: HYPERTENSION
     Dosage: 150 MG, BID
     Route: 048
     Dates: start: 20110817
  3. LOSARTAN [Suspect]
     Indication: HYPERTENSION
     Dosage: 100 MG, BID
  4. BENICAR [Suspect]
     Indication: HYPERTENSION
     Dosage: UNK UKN, UNK
  5. AMBIEN [Suspect]
     Dosage: 5 MG, QD
  6. METOPROLOL [Concomitant]
     Dosage: 100 MG, UNK
  7. LEVOTHYROXINE SODIUM [Concomitant]
     Dosage: 50 UG, UNK
  8. CITALOPRAM [Concomitant]
     Dosage: 40 UG, UNK

REACTIONS (6)
  - Atrial fibrillation [Unknown]
  - Hypertension [Unknown]
  - Dizziness [Unknown]
  - Hypoaesthesia [Unknown]
  - Inappropriate schedule of drug administration [Unknown]
  - Drug ineffective [Unknown]
